FAERS Safety Report 12184638 (Version 6)
Quarter: 2016Q2

REPORT INFORMATION
  Report Type: Report from Study
  Country: IL (occurrence: IL)
  Receive Date: 20160316
  Receipt Date: 20160527
  Transmission Date: 20160815
  Serious: Yes (Other)
  Sender: FDA-Public Use
  Company Number: IL-JNJFOC-20160308429

PATIENT
  Sex: Female

DRUGS (1)
  1. SIMPONI [Suspect]
     Active Substance: GOLIMUMAB
     Indication: COLITIS ULCERATIVE
     Route: 058
     Dates: start: 20151001, end: 20160401

REACTIONS (3)
  - Infection [Unknown]
  - Rectal haemorrhage [Not Recovered/Not Resolved]
  - Drug ineffective [Unknown]
